FAERS Safety Report 25483748 (Version 1)
Quarter: 2025Q2

REPORT INFORMATION
  Report Type: Spontaneous
  Country: US (occurrence: None)
  Receive Date: 20250626
  Receipt Date: 20250626
  Transmission Date: 20250716
  Serious: Yes (Hospitalization)
  Sender: FDA-CTU
  Company Number: None

PATIENT
  Age: 71 Year
  Sex: Female
  Weight: 52.65 kg

DRUGS (12)
  1. ARGININE [Suspect]
     Active Substance: ARGININE
     Indication: Metastases to central nervous system
     Dosage: FREQUENCY : DAILY;?
     Route: 048
     Dates: start: 20250528, end: 20250610
  2. MEMANTINE [Concomitant]
     Active Substance: MEMANTINE
     Dates: start: 20250515
  3. DEXAMETHASONE [Concomitant]
     Active Substance: DEXAMETHASONE
     Dates: start: 20250508, end: 20250610
  4. TRAMADOL [Concomitant]
     Active Substance: TRAMADOL
     Dates: start: 20250503
  5. TYLENOL [Concomitant]
     Active Substance: ACETAMINOPHEN
     Dates: start: 20250301
  6. CETIRIZINE HCL [Concomitant]
     Active Substance: CETIRIZINE HYDROCHLORIDE
     Dates: start: 20200514
  7. ERGOCALCIFEROL [Concomitant]
     Active Substance: ERGOCALCIFEROL
     Dates: start: 20250315
  8. MELOXICAM [Concomitant]
     Active Substance: MELOXICAM
     Dates: start: 20250107, end: 20250430
  9. ONDANSETRON [Concomitant]
     Active Substance: ONDANSETRON
     Dates: start: 20240528, end: 20250610
  10. INSULIN GLARGINE-YFGN [Concomitant]
     Active Substance: INSULIN GLARGINE-YFGN
     Dates: start: 202506
  11. INSULIN LISPRO [Concomitant]
     Active Substance: INSULIN LISPRO
     Dates: start: 202506
  12. SITAGLIPTIN [Concomitant]
     Active Substance: SITAGLIPTIN
     Dates: start: 202506, end: 20250617

REACTIONS (6)
  - Nocturnal dyspnoea [None]
  - Dyspnoea exertional [None]
  - Adverse drug reaction [None]
  - Hypersensitivity [None]
  - Inadequate diet [None]
  - Fatigue [None]

NARRATIVE: CASE EVENT DATE: 20250613
